FAERS Safety Report 19188633 (Version 1)
Quarter: 2021Q2

REPORT INFORMATION
  Report Type: Spontaneous
  Country: US (occurrence: US)
  Receive Date: 20210427
  Receipt Date: 20210427
  Transmission Date: 20210717
  Serious: No
  Sender: FDA-Public Use
  Company Number: US-PRINSTON PHARMACEUTICAL INC.-2019PRN00898

PATIENT
  Age: 37 Year
  Sex: Female
  Weight: 65.76 kg

DRUGS (2)
  1. CLONAZEPAM. [Suspect]
     Active Substance: CLONAZEPAM
     Indication: PANIC ATTACK
     Dosage: 1 MG, 3X/DAY
     Route: 048
     Dates: start: 201906
  2. CLONAZEPAM. [Suspect]
     Active Substance: CLONAZEPAM
     Indication: ANXIETY DISORDER

REACTIONS (6)
  - Drug ineffective [Not Recovered/Not Resolved]
  - Panic attack [Unknown]
  - Withdrawal syndrome [Unknown]
  - Product substitution issue [Not Recovered/Not Resolved]
  - Feeling abnormal [Unknown]
  - Drug screen negative [Not Recovered/Not Resolved]

NARRATIVE: CASE EVENT DATE: 2019
